FAERS Safety Report 21580511 (Version 1)
Quarter: 2022Q4

REPORT INFORMATION
  Report Type: Spontaneous
  Country: CA (occurrence: CA)
  Receive Date: 20221110
  Receipt Date: 20221110
  Transmission Date: 20230113
  Serious: Yes (Congenital Anomaly)
  Sender: FDA-Public Use
  Company Number: CA-BRISTOL-MYERS SQUIBB COMPANY-2022-124610

PATIENT

DRUGS (122)
  1. ORENCIA [Suspect]
     Active Substance: ABATACEPT
     Indication: Product used for unknown indication
     Route: 064
  2. ORENCIA [Suspect]
     Active Substance: ABATACEPT
     Indication: Product used for unknown indication
     Route: 064
  3. ORENCIA [Suspect]
     Active Substance: ABATACEPT
     Dosage: 4 YEARS
     Route: 064
  4. ORENCIA [Suspect]
     Active Substance: ABATACEPT
     Route: 064
  5. ORENCIA [Suspect]
     Active Substance: ABATACEPT
     Route: 064
  6. ORENCIA [Suspect]
     Active Substance: ABATACEPT
     Indication: Product used for unknown indication
     Route: 064
  7. ORENCIA [Suspect]
     Active Substance: ABATACEPT
     Dosage: 750 MILLIGRAM FOR 7 YEARS
     Route: 064
  8. XELJANZ [Concomitant]
     Active Substance: TOFACITINIB CITRATE
     Indication: Product used for unknown indication
     Dosage: 5 MILLIGRAM, BID
     Route: 064
  9. XELJANZ [Concomitant]
     Active Substance: TOFACITINIB CITRATE
     Route: 064
  10. XELJANZ [Concomitant]
     Active Substance: TOFACITINIB CITRATE
     Route: 064
  11. XELJANZ [Concomitant]
     Active Substance: TOFACITINIB CITRATE
     Route: 064
  12. XELJANZ [Concomitant]
     Active Substance: TOFACITINIB CITRATE
     Route: 064
  13. RITUXIMAB [Concomitant]
     Active Substance: RITUXIMAB
     Indication: Product used for unknown indication
     Route: 064
  14. RITUXIMAB [Concomitant]
     Active Substance: RITUXIMAB
     Route: 064
  15. RITUXIMAB [Concomitant]
     Active Substance: RITUXIMAB
     Route: 064
  16. RITUXIMAB [Concomitant]
     Active Substance: RITUXIMAB
     Route: 064
  17. RITUXIMAB [Concomitant]
     Active Substance: RITUXIMAB
     Route: 064
  18. RITUXIMAB [Concomitant]
     Active Substance: RITUXIMAB
     Route: 064
  19. RITUXIMAB [Concomitant]
     Active Substance: RITUXIMAB
     Dosage: 5.0 MONTHS
     Route: 064
  20. RITUXIMAB [Concomitant]
     Active Substance: RITUXIMAB
     Route: 064
  21. RITUXIMAB [Concomitant]
     Active Substance: RITUXIMAB
     Route: 064
  22. RITUXIMAB [Concomitant]
     Active Substance: RITUXIMAB
     Route: 064
  23. TOFACITINIB CITRATE [Concomitant]
     Active Substance: TOFACITINIB CITRATE
     Indication: Product used for unknown indication
     Route: 064
  24. TOFACITINIB CITRATE [Concomitant]
     Active Substance: TOFACITINIB CITRATE
     Route: 064
  25. TOFACITINIB CITRATE [Concomitant]
     Active Substance: TOFACITINIB CITRATE
     Route: 064
  26. SULFASALAZINE [Concomitant]
     Active Substance: SULFASALAZINE
     Indication: Product used for unknown indication
     Route: 064
  27. SULFASALAZINE [Concomitant]
     Active Substance: SULFASALAZINE
     Route: 064
  28. SULFASALAZINE [Concomitant]
     Active Substance: SULFASALAZINE
     Route: 064
  29. SIMPONI [Concomitant]
     Active Substance: GOLIMUMAB
     Indication: Product used for unknown indication
     Route: 064
  30. SIMPONI [Concomitant]
     Active Substance: GOLIMUMAB
     Dosage: 334.0 DAYS
     Route: 064
  31. SIMPONI [Concomitant]
     Active Substance: GOLIMUMAB
     Route: 064
  32. SIMPONI [Concomitant]
     Active Substance: GOLIMUMAB
     Dosage: 3.0 YEARS
     Route: 064
  33. REMICADE [Concomitant]
     Active Substance: INFLIXIMAB
     Indication: Product used for unknown indication
     Dosage: 9.0 MONTHS
     Route: 064
  34. REMICADE [Concomitant]
     Active Substance: INFLIXIMAB
     Route: 064
  35. REMICADE [Concomitant]
     Active Substance: INFLIXIMAB
     Route: 064
  36. REMICADE [Concomitant]
     Active Substance: INFLIXIMAB
     Route: 064
  37. REMICADE [Concomitant]
     Active Substance: INFLIXIMAB
     Route: 064
  38. PREDNISONE [Concomitant]
     Active Substance: PREDNISONE
     Indication: Product used for unknown indication
     Route: 064
  39. PREDNISONE [Concomitant]
     Active Substance: PREDNISONE
     Route: 064
  40. PREDNISONE [Concomitant]
     Active Substance: PREDNISONE
     Route: 064
  41. PREDNISONE [Concomitant]
     Active Substance: PREDNISONE
     Route: 064
  42. PREDNISONE [Concomitant]
     Active Substance: PREDNISONE
     Route: 064
  43. METHOTREXATE [Concomitant]
     Active Substance: METHOTREXATE
     Indication: Product used for unknown indication
     Route: 064
  44. METHOTREXATE [Concomitant]
     Active Substance: METHOTREXATE
     Route: 064
  45. METHOTREXATE [Concomitant]
     Active Substance: METHOTREXATE
     Route: 064
  46. METHOTREXATE [Concomitant]
     Active Substance: METHOTREXATE
     Route: 064
  47. METHOTREXATE [Concomitant]
     Active Substance: METHOTREXATE
     Route: 064
  48. METHOTREXATE [Concomitant]
     Active Substance: METHOTREXATE
     Route: 064
  49. METHOTREXATE [Concomitant]
     Active Substance: METHOTREXATE
     Route: 064
  50. LEFLUNOMIDE [Concomitant]
     Active Substance: LEFLUNOMIDE
     Indication: Product used for unknown indication
     Route: 064
  51. LEFLUNOMIDE [Concomitant]
     Active Substance: LEFLUNOMIDE
     Route: 064
  52. LEFLUNOMIDE [Concomitant]
     Active Substance: LEFLUNOMIDE
     Route: 064
  53. HYDROXYCHLOROQUINE SULFATE [Concomitant]
     Active Substance: HYDROXYCHLOROQUINE SULFATE
     Indication: Product used for unknown indication
     Route: 064
  54. HYDROXYCHLOROQUINE SULFATE [Concomitant]
     Active Substance: HYDROXYCHLOROQUINE SULFATE
     Route: 064
  55. HYDROXYCHLOROQUINE SULFATE [Concomitant]
     Active Substance: HYDROXYCHLOROQUINE SULFATE
     Dosage: 4.0 MONTHS
     Route: 064
  56. HUMIRA [Concomitant]
     Active Substance: ADALIMUMAB
     Indication: Product used for unknown indication
     Dosage: 4.0 MONTHS
     Route: 064
  57. HUMIRA [Concomitant]
     Active Substance: ADALIMUMAB
     Route: 064
  58. HUMIRA [Concomitant]
     Active Substance: ADALIMUMAB
     Route: 064
  59. HUMIRA [Concomitant]
     Active Substance: ADALIMUMAB
     Route: 064
  60. HUMIRA [Concomitant]
     Active Substance: ADALIMUMAB
     Route: 064
  61. GOLD [Concomitant]
     Active Substance: GOLD
     Indication: Product used for unknown indication
     Route: 064
  62. CIMZIA [Concomitant]
     Active Substance: CERTOLIZUMAB PEGOL
     Indication: Product used for unknown indication
     Route: 064
  63. ARAVA [Concomitant]
     Active Substance: LEFLUNOMIDE
     Indication: Product used for unknown indication
     Route: 064
  64. ARAVA [Concomitant]
     Active Substance: LEFLUNOMIDE
     Route: 064
  65. ARAVA [Concomitant]
     Active Substance: LEFLUNOMIDE
     Route: 064
  66. ENBREL [Concomitant]
     Active Substance: ETANERCEPT
     Indication: Product used for unknown indication
     Route: 064
  67. ENBREL [Concomitant]
     Active Substance: ETANERCEPT
     Dosage: 12.0 MONTHS
     Route: 064
  68. ENBREL [Concomitant]
     Active Substance: ETANERCEPT
     Route: 064
  69. ENBREL [Concomitant]
     Active Substance: ETANERCEPT
     Route: 064
  70. ENBREL [Concomitant]
     Active Substance: ETANERCEPT
     Route: 064
  71. ENBREL [Concomitant]
     Active Substance: ETANERCEPT
     Dosage: 5.0 MONTHS
     Route: 064
  72. PREDNISONE [Concomitant]
     Active Substance: PREDNISONE
     Indication: Product used for unknown indication
     Route: 064
  73. PREDNISONE [Concomitant]
     Active Substance: PREDNISONE
     Route: 064
  74. PREDNISONE [Concomitant]
     Active Substance: PREDNISONE
     Route: 064
  75. ACTEMRA [Concomitant]
     Active Substance: TOCILIZUMAB
     Indication: Product used for unknown indication
     Dosage: 6.0 MONTHS
     Route: 064
  76. ACTEMRA [Concomitant]
     Active Substance: TOCILIZUMAB
     Route: 064
  77. ACTEMRA [Concomitant]
     Active Substance: TOCILIZUMAB
     Dosage: 2.0 YEARS
     Route: 064
  78. ACTEMRA [Concomitant]
     Active Substance: TOCILIZUMAB
     Route: 064
  79. ACTEMRA [Concomitant]
     Active Substance: TOCILIZUMAB
     Route: 064
  80. ACTEMRA [Concomitant]
     Active Substance: TOCILIZUMAB
     Route: 064
  81. SULFASALAZINE [Concomitant]
     Active Substance: SULFASALAZINE
     Indication: Product used for unknown indication
     Dosage: 4.0 MONTHS
     Route: 064
  82. ACETAMINOPHEN [Concomitant]
     Active Substance: ACETAMINOPHEN
     Indication: Product used for unknown indication
     Route: 064
  83. LEFLUNOMIDE [Concomitant]
     Active Substance: LEFLUNOMIDE
     Indication: Product used for unknown indication
     Route: 064
  84. LEFLUNOMIDE [Concomitant]
     Active Substance: LEFLUNOMIDE
     Route: 064
  85. LEFLUNOMIDE [Concomitant]
     Active Substance: LEFLUNOMIDE
     Route: 064
  86. ALENDRONATE SODIUM [Concomitant]
     Active Substance: ALENDRONATE SODIUM
     Indication: Product used for unknown indication
     Route: 064
  87. TRAMADOL HYDROCHLORIDE [Concomitant]
     Active Substance: TRAMADOL HYDROCHLORIDE
     Indication: Product used for unknown indication
     Route: 064
  88. APREMILAST [Concomitant]
     Active Substance: APREMILAST
     Indication: Product used for unknown indication
     Route: 064
  89. AZATHIOPRINE [Concomitant]
     Active Substance: AZATHIOPRINE
     Indication: Product used for unknown indication
     Route: 064
  90. CERTOLIZUMAB PEGOL [Concomitant]
     Active Substance: CERTOLIZUMAB PEGOL
     Indication: Product used for unknown indication
     Route: 064
  91. CETIRIZINE [Concomitant]
     Active Substance: CETIRIZINE HYDROCHLORIDE
     Indication: Product used for unknown indication
     Route: 064
  92. CORTISONE ACETATE [Concomitant]
     Active Substance: CORTISONE ACETATE
     Indication: Product used for unknown indication
     Route: 064
  93. COSENTYX [Concomitant]
     Active Substance: SECUKINUMAB
     Indication: Product used for unknown indication
     Route: 064
  94. DESOXIMETASONE [Concomitant]
     Active Substance: DESOXIMETASONE
     Indication: Product used for unknown indication
     Route: 064
  95. DESOXIMETASONE [Concomitant]
     Active Substance: DESOXIMETASONE
     Route: 064
  96. DESOXIMETASONE [Concomitant]
     Active Substance: DESOXIMETASONE
     Route: 064
  97. DICLOFENAC SODIUM [Concomitant]
     Active Substance: DICLOFENAC SODIUM
     Indication: Product used for unknown indication
     Route: 064
  98. ERELZI [Concomitant]
     Active Substance: ETANERCEPT-SZZS
     Indication: Product used for unknown indication
     Route: 064
  99. FLUMETHASONE PIVALATE [Concomitant]
     Active Substance: FLUMETHASONE PIVALATE
     Indication: Product used for unknown indication
     Route: 064
  100. FOLIC ACID [Concomitant]
     Active Substance: FOLIC ACID
     Indication: Product used for unknown indication
     Route: 064
  101. FOSAMAX [Concomitant]
     Active Substance: ALENDRONATE SODIUM
     Indication: Product used for unknown indication
     Route: 064
  102. GOLD SODIUM THIOMALATE [Concomitant]
     Active Substance: GOLD SODIUM THIOMALATE
     Indication: Product used for unknown indication
     Route: 064
  103. HYDROCORTISONE ACETATE [Concomitant]
     Active Substance: HYDROCORTISONE ACETATE
     Indication: Product used for unknown indication
     Route: 064
  104. HYDROXYCHLOROQUINE [Concomitant]
     Active Substance: HYDROXYCHLOROQUINE
     Indication: Product used for unknown indication
     Route: 064
  105. HYDROXYCHLOROQUINE [Concomitant]
     Active Substance: HYDROXYCHLOROQUINE
     Dosage: 4.0 MONTHS
     Route: 064
  106. HYDROXYCHLOROQUINE [Concomitant]
     Active Substance: HYDROXYCHLOROQUINE
     Route: 064
  107. HYDROXYCHLOROQUINE [Concomitant]
     Active Substance: HYDROXYCHLOROQUINE
     Route: 064
  108. INFLIXIMAB [Concomitant]
     Active Substance: INFLIXIMAB
     Indication: Product used for unknown indication
     Route: 064
  109. KEVZARA [Concomitant]
     Active Substance: SARILUMAB
     Indication: Product used for unknown indication
     Route: 064
  110. METHYLPREDNISOLONE [Concomitant]
     Active Substance: METHYLPREDNISOLONE
     Indication: Product used for unknown indication
     Route: 064
  111. MINOCIN [MINOCYCLINE HYDROCHLORIDE] [Concomitant]
     Indication: Product used for unknown indication
     Route: 064
  112. MINOCYCLINE HYDROCHLORIDE [Concomitant]
     Active Substance: MINOCYCLINE HYDROCHLORIDE
     Indication: Product used for unknown indication
     Route: 064
  113. MYOCHRYSINE [Concomitant]
     Active Substance: GOLD SODIUM THIOMALATE
     Indication: Product used for unknown indication
     Route: 064
  114. NAPROXEN [Concomitant]
     Active Substance: NAPROXEN
     Indication: Product used for unknown indication
     Route: 064
  115. PHTHALYLSULFATHIAZOLE [Concomitant]
     Active Substance: PHTHALYLSULFATHIAZOLE
     Indication: Product used for unknown indication
     Route: 064
  116. PSEUDOEPHEDRINE HYDROCHLORIDE [Concomitant]
     Active Substance: PSEUDOEPHEDRINE HYDROCHLORIDE
     Indication: Product used for unknown indication
     Route: 064
  117. SIRUKUMAB [Concomitant]
     Active Substance: SIRUKUMAB
     Indication: Product used for unknown indication
     Route: 064
  118. GOLD SODIUM THIOMALATE [Concomitant]
     Active Substance: GOLD SODIUM THIOMALATE
     Indication: Product used for unknown indication
     Route: 064
  119. STELARA [Concomitant]
     Active Substance: USTEKINUMAB
     Indication: Product used for unknown indication
     Route: 064
  120. TOCILIZUMAB [Concomitant]
     Active Substance: TOCILIZUMAB
     Indication: Product used for unknown indication
     Route: 064
  121. TOCILIZUMAB [Concomitant]
     Active Substance: TOCILIZUMAB
     Route: 064
  122. TOCILIZUMAB [Concomitant]
     Active Substance: TOCILIZUMAB
     Route: 064

REACTIONS (2)
  - Foetal exposure during pregnancy [Unknown]
  - Congenital anomaly [Unknown]
